FAERS Safety Report 5332894-X (Version None)
Quarter: 2007Q2

REPORT INFORMATION
  Report Type: 
  Country: None (occurrence: None)
  Receive Date: 20070521
  Receipt Date: 20070504
  Transmission Date: 20071010
  Serious: Yes (Hospitalization)
  Sender: FDA-Public Use
  Company Number: 2007RR-07390

PATIENT
  Age: 60 Year
  Sex: Female

DRUGS (2)
  1. FENOFIBRATE [Suspect]
     Indication: HYPERTRIGLYCERIDAEMIA
     Dosage: 250 MG, QD
     Dates: start: 20031201
  2. RALOXIFENE HCL [Suspect]
     Indication: OSTEOPOROSIS
     Dosage: 60 MG, QD
     Dates: start: 20000101

REACTIONS (11)
  - BIOPSY LIVER ABNORMAL [None]
  - CHOLELITHIASIS [None]
  - CHOLESTASIS [None]
  - CHROMATURIA [None]
  - DRUG INTERACTION [None]
  - ERYTHEMA MULTIFORME [None]
  - HEPATIC NECROSIS [None]
  - HEPATITIS [None]
  - IMMUNOLOGY TEST ABNORMAL [None]
  - LUNG INFILTRATION [None]
  - RASH [None]
